FAERS Safety Report 6041797-7 (Version None)
Quarter: 2009Q1

REPORT INFORMATION
  Report Type: 
  Country: None (occurrence: None)
  Receive Date: 20090116
  Receipt Date: 20090109
  Transmission Date: 20090719
  Serious: Yes (Other)
  Sender: FDA-Public Use
  Company Number: AU-AVENTIS-200910386GDDC

PATIENT
  Age: 69 Year
  Sex: Female

DRUGS (4)
  1. ARAVA [Suspect]
     Route: 048
     Dates: start: 20031210
  2. OLMETEC [Concomitant]
     Dosage: DOSE: UNK
  3. WARFARIN SODIUM [Concomitant]
     Dosage: DOSE: UNK
  4. PREDNISONE [Concomitant]
     Dosage: DOSE: UNK

REACTIONS (3)
  - DYSPNOEA [None]
  - PLEURAL FIBROSIS [None]
  - THYROID NEOPLASM [None]
